FAERS Safety Report 14970492 (Version 2)
Quarter: 2019Q2

REPORT INFORMATION
  Report Type: Spontaneous
  Country: US (occurrence: US)
  Receive Date: 20180604
  Receipt Date: 20190606
  Transmission Date: 20190711
  Serious: No
  Sender: FDA-Public Use
  Company Number: US-ALLERGAN-1823295US

PATIENT
  Sex: Male

DRUGS (1)
  1. KYBELLA [Suspect]
     Active Substance: DEOXYCHOLIC ACID
     Indication: PRODUCT USED FOR UNKNOWN INDICATION
     Dosage: 4 VIALS, SINGLE
     Route: 058
     Dates: start: 201803, end: 201803

REACTIONS (3)
  - Blister [Recovering/Resolving]
  - Swelling [Recovering/Resolving]
  - Contusion [Recovered/Resolved]
